FAERS Safety Report 11449270 (Version 3)
Quarter: 2015Q3

REPORT INFORMATION
  Report Type: Report from Study
  Country: US (occurrence: None)
  Receive Date: 20150902
  Receipt Date: 20150925
  Transmission Date: 20151125
  Serious: Yes (Other)
  Sender: FDA-Public Use
  Company Number: US-MDT-ADR-2015-01687

PATIENT
  Age: 63 Year
  Sex: Female

DRUGS (1)
  1. LIORESAL [Suspect]
     Active Substance: BACLOFEN
     Dosage: 71.05 MCG/DAY

REACTIONS (3)
  - Incision site pain [None]
  - Pocket erosion [None]
  - Medical device site scar [None]
